FAERS Safety Report 23755762 (Version 3)
Quarter: 2024Q3

REPORT INFORMATION
  Report Type: Report from Study
  Country: RU (occurrence: RU)
  Receive Date: 20240418
  Receipt Date: 20240805
  Transmission Date: 20241016
  Serious: Yes (Other)
  Sender: NOVARTIS
  Company Number: RU-002147023-NVSC2024RU068989

PATIENT
  Age: 46 Year
  Sex: Male

DRUGS (10)
  1. INCLISIRAN [Suspect]
     Active Substance: INCLISIRAN
     Indication: Dyslipidaemia
     Dosage: 284 MG/1.5 ML (SUBSEQUENT  DOSE AFTER  THREE  MONTHS)
     Route: 058
     Dates: start: 20231109
  2. INCLISIRAN [Suspect]
     Active Substance: INCLISIRAN
     Dosage: UNK
     Route: 058
     Dates: start: 20240208
  3. LOSARTAN [Concomitant]
     Active Substance: LOSARTAN
     Indication: Blood pressure measurement
     Dosage: 50 MG, QD IN THE MORNING
     Route: 065
  4. METOPROLOL [Concomitant]
     Active Substance: METOPROLOL
     Indication: Product used for unknown indication
     Dosage: 50 MG, BID (IN THE MORNING AND IN THE EVENING)
     Route: 065
  5. BRILINTA [Concomitant]
     Active Substance: TICAGRELOR
     Indication: Product used for unknown indication
     Dosage: 90 MG, BID (IN THE MORNING AND IN THE EVENING)
     Route: 065
  6. RABEPRAZOLE [Concomitant]
     Active Substance: RABEPRAZOLE
     Indication: Product used for unknown indication
     Dosage: 20 MG, QD (IN THE MORNING)
     Route: 065
  7. ASPIRIN [Concomitant]
     Active Substance: ASPIRIN
     Indication: Product used for unknown indication
     Dosage: 100 MG, QD
     Route: 065
  8. AMLODIPINE [Concomitant]
     Active Substance: AMLODIPINE BESYLATE
     Indication: Product used for unknown indication
     Dosage: 10 MG, QD (IN THE EVENING)
     Route: 065
  9. ATORVASTATIN [Concomitant]
     Active Substance: ATORVASTATIN
     Indication: Product used for unknown indication
     Dosage: 40 MG, UNKNOWN
     Route: 065
  10. EZETIMIBE [Concomitant]
     Active Substance: EZETIMIBE
     Indication: Product used for unknown indication
     Dosage: 10 ML, UNKNOWN
     Route: 065

REACTIONS (1)
  - Low density lipoprotein decreased [Unknown]

NARRATIVE: CASE EVENT DATE: 20240326
